FAERS Safety Report 10082877 (Version 2)
Quarter: 2014Q2

REPORT INFORMATION
  Report Type: Spontaneous
  Country: US (occurrence: US)
  Receive Date: 20140416
  Receipt Date: 20140430
  Transmission Date: 20141212
  Serious: Yes (Hospitalization, Other)
  Sender: FDA-Public Use
  Company Number: US-TAKEDA-2014TUS002865

PATIENT
  Age: 36 Year
  Sex: Male
  Weight: 115.65 kg

DRUGS (7)
  1. BRINTELLIX [Suspect]
     Indication: MAJOR DEPRESSION
     Dosage: 10 MG, QD
     Route: 048
     Dates: start: 20140211, end: 20140225
  2. EFFEXOR [Concomitant]
     Indication: MAJOR DEPRESSION
     Route: 048
  3. VICODIN [Concomitant]
     Route: 048
  4. ZOLOFT [Concomitant]
     Indication: MAJOR DEPRESSION
     Dosage: 100 MG, QD
     Route: 048
     Dates: start: 201312
  5. COUMADIN                           /00014802/ [Concomitant]
     Indication: PULMONARY EMBOLISM
     Dosage: 10 MG, QD SINCE FEW YEARS
     Route: 048
  6. BACLOFEN [Concomitant]
     Indication: BACK PAIN
     Dosage: 10 MG, TID SINCE FEW YEARS
     Route: 048
  7. OXYCONTIN [Concomitant]
     Indication: BACK PAIN
     Dosage: 10 MG, BID
     Route: 048

REACTIONS (2)
  - Suicide attempt [Recovered/Resolved]
  - Overdose [Recovered/Resolved]
